FAERS Safety Report 7053886-9 (Version None)
Quarter: 2010Q4

REPORT INFORMATION
  Report Type: 
  Country: None (occurrence: None)
  Receive Date: 20101020
  Receipt Date: 20101018
  Transmission Date: 20110411
  Serious: Yes (Hospitalization, Other)
  Sender: FDA-Public Use
  Company Number: RO-BRISTOL-MYERS SQUIBB COMPANY-15227291

PATIENT
  Age: 37 Year
  Sex: Female
  Weight: 52 kg

DRUGS (4)
  1. REYATAZ [Suspect]
     Indication: HIV INFECTION
     Route: 048
     Dates: start: 20090507
  2. VIDEX [Suspect]
     Indication: HIV INFECTION
     Dates: start: 20090507
  3. NORVIR [Suspect]
     Indication: HIV INFECTION
     Dates: start: 20100507
  4. ZIAGEN [Suspect]
     Indication: HIV INFECTION
     Dates: start: 20090507

REACTIONS (2)
  - CHOLELITHIASIS [None]
  - OCULAR ICTERUS [None]
